FAERS Safety Report 22816569 (Version 9)
Quarter: 2024Q3

REPORT INFORMATION
  Report Type: Spontaneous
  Country: US (occurrence: US)
  Receive Date: 20230811
  Receipt Date: 20240808
  Transmission Date: 20241016
  Serious: Yes (Other)
  Sender: BRISTOL MYERS SQUIBB
  Company Number: US-BRISTOL-MYERS SQUIBB COMPANY-2023-109054

PATIENT
  Age: 72 Year
  Sex: Female

DRUGS (3)
  1. POMALYST [Suspect]
     Active Substance: POMALIDOMIDE
     Indication: Plasma cell myeloma
     Dosage: TAKE 1 CAPSULE WHOLE BY MOUTH WITH WATER, W/ OR W/O FOOD, AT SAME TIME DAILY ON DAYS 1- 21 OF EACH 2
     Route: 048
     Dates: start: 20230220
  2. POMALYST [Suspect]
     Active Substance: POMALIDOMIDE
     Dosage: TAKE 1 CAPSULE WHOLE BY MOUTH WITH WATER, WITH OR WITHOUT FOOD, AT SAME TIME DAILY ON DAYS 1-21 OF 2
     Route: 048
  3. POMALYST [Suspect]
     Active Substance: POMALIDOMIDE
     Dosage: TAKE 1 CAPSULE BY MOUTH WHOLE W/ WATER, W/ OR W/O FOOD AT THE SAME TIME DAILY ON DAYS 1-21 OF EACH 2
     Route: 048

REACTIONS (10)
  - COVID-19 [Not Recovered/Not Resolved]
  - Skin discolouration [Recovering/Resolving]
  - Scab [Unknown]
  - Laboratory test abnormal [Not Recovered/Not Resolved]
  - Dehydration [Recovering/Resolving]
  - Rash [Not Recovered/Not Resolved]
  - Headache [Recovering/Resolving]
  - Thrombosis [Recovering/Resolving]
  - Pain in extremity [Not Recovered/Not Resolved]
  - Peripheral swelling [Not Recovered/Not Resolved]

NARRATIVE: CASE EVENT DATE: 20230728
